FAERS Safety Report 4772923-5 (Version None)
Quarter: 2005Q3

REPORT INFORMATION
  Report Type: 
  Country: None (occurrence: None)
  Receive Date: 20050916
  Receipt Date: 20050901
  Transmission Date: 20060218
  Serious: Yes (Disabling)
  Sender: FDA-Public Use
  Company Number: S05-CAN-03328-01

PATIENT
  Age: 72 Year
  Sex: Female

DRUGS (8)
  1. MEMANTINE HCL [Suspect]
     Dosage: 5 MG QD PO
     Route: 048
     Dates: start: 20050611, end: 20050617
  2. MEMANTINE HCL [Suspect]
     Dosage: 5 MG BID PO
     Route: 048
     Dates: start: 20050618, end: 20050624
  3. MEMANTINE HCL [Suspect]
     Dosage: 5 MG TID PO
     Route: 048
     Dates: start: 20050625, end: 20050701
  4. MEMANTINE HCL [Suspect]
     Dosage: 10 MG BID PO
     Route: 048
     Dates: start: 20050702, end: 20050723
  5. ZOPICLONE [Concomitant]
  6. CES (ESTROGENS CONJUGATED) [Concomitant]
  7. HYDROCHLOROTHIAZIDE [Concomitant]
  8. ARICEPT [Concomitant]

REACTIONS (4)
  - ABNORMAL BEHAVIOUR [None]
  - AGITATION [None]
  - CONFUSIONAL STATE [None]
  - FALL [None]
